FAERS Safety Report 5092450-8 (Version None)
Quarter: 2006Q3

REPORT INFORMATION
  Report Type: 
  Country: None (occurrence: None)
  Receive Date: 20060825
  Receipt Date: 20060814
  Transmission Date: 20061208
  Serious: Yes (Hospitalization, Other)
  Sender: FDA-Public Use
  Company Number: 2006098925

PATIENT
  Age: 52 Year
  Sex: Male
  Weight: 74.3899 kg

DRUGS (17)
  1. MINOXIDIL [Suspect]
     Indication: HYPERTENSION
     Dosage: 2.5 MG (2.5 MG, 1 IN 1 DAY),
  2. PROCRIT [Suspect]
     Indication: NEPHROGENIC ANAEMIA
     Dosage: SEE IMAGE
     Dates: end: 20060629
  3. PROCRIT [Suspect]
     Indication: NEPHROGENIC ANAEMIA
     Dosage: SEE IMAGE
     Dates: start: 20060401
  4. CELLCEPT [Concomitant]
  5. PREDNISONE TAB [Concomitant]
  6. LIPITOR [Concomitant]
  7. ATENOLOL [Concomitant]
  8. SYNTHROID [Concomitant]
  9. LANTUS [Concomitant]
  10. ASPIRIN [Concomitant]
  11. LASIX [Concomitant]
  12. ALLOPURINOL [Concomitant]
  13. COLCHICUM JTL LIQ [Concomitant]
  14. PLENDIL [Concomitant]
  15. SODIUM BICARBONATE IN PLASTIC CONTAINER [Concomitant]
  16. AMBIEN [Concomitant]
  17. COUMADIN [Concomitant]

REACTIONS (6)
  - ANTI-ERYTHROPOIETIN ANTIBODY [None]
  - APLASIA PURE RED CELL [None]
  - COELIAC DISEASE [None]
  - FLUID OVERLOAD [None]
  - PERICARDIAL EFFUSION [None]
  - THERAPEUTIC RESPONSE DECREASED [None]
